FAERS Safety Report 11203890 (Version 1)
Quarter: 2015Q2

REPORT INFORMATION
  Report Type: Report from Study
  Country: MX (occurrence: MX)
  Receive Date: 20150619
  Receipt Date: 20150619
  Transmission Date: 20150821
  Serious: Yes (Other)
  Sender: FDA-Public Use
  Company Number: PHHY2015MX072870

PATIENT
  Age: 66 Year
  Sex: Female

DRUGS (1)
  1. AFINITOR [Suspect]
     Active Substance: EVEROLIMUS
     Indication: RENAL CELL CARCINOMA
     Dosage: UNK
     Dates: start: 201005

REACTIONS (4)
  - Post herpetic neuralgia [Recovering/Resolving]
  - Osteolysis [Unknown]
  - Pulmonary fibrosis [Unknown]
  - Metastases to bone [Unknown]

NARRATIVE: CASE EVENT DATE: 201201
